FAERS Safety Report 20807409 (Version 1)
Quarter: 2022Q2

REPORT INFORMATION
  Report Type: Spontaneous
  Country: US (occurrence: None)
  Receive Date: 20220509
  Receipt Date: 20220509
  Transmission Date: 20220721
  Serious: No
  Sender: FDA-Public Use
  Company Number: None

PATIENT
  Age: 60 Year
  Sex: Male
  Weight: 200 kg

DRUGS (1)
  1. SULFAMETHOXAZOLE\TRIMETHOPRIM [Suspect]
     Active Substance: SULFAMETHOXAZOLE\TRIMETHOPRIM
     Indication: Urinary tract infection
     Dosage: OTHER QUANTITY : 800/160 MG;?FREQUENCY : TWICE A DAY;?
     Route: 048
     Dates: start: 20220207, end: 20220208

REACTIONS (5)
  - Abdominal pain [None]
  - Alcohol poisoning [None]
  - Hyponatraemia [None]
  - Hyperkalaemia [None]
  - Hypokalaemia [None]

NARRATIVE: CASE EVENT DATE: 20220208
